FAERS Safety Report 7383882-3 (Version None)
Quarter: 2011Q1

REPORT INFORMATION
  Report Type: 
  Country: None (occurrence: None)
  Receive Date: 20110330
  Receipt Date: 20110322
  Transmission Date: 20110831
  Serious: Yes (Death, Hospitalization, Other)
  Sender: FDA-Public Use
  Company Number: US-TYCO HEALTHCARE/MALLINCKRODT-T201001627

PATIENT
  Sex: Male
  Weight: 80.726 kg

DRUGS (7)
  1. OMNISCAN [Suspect]
     Dosage: UNK
  2. MYCOPHENOLATE MOFETIL [Concomitant]
     Indication: PROPHYLAXIS AGAINST TRANSPLANT REJECTION
     Dosage: UNK
     Dates: start: 20050613
  3. SIROLIMUS [Concomitant]
     Indication: PROPHYLAXIS AGAINST TRANSPLANT REJECTION
     Dosage: UNK
     Dates: start: 20050613
  4. MAGNEVIST [Suspect]
     Dosage: UNK
  5. OPTIMARK [Suspect]
     Indication: NUCLEAR MAGNETIC RESONANCE IMAGING
     Dosage: UNK
     Dates: start: 20050630, end: 20050630
  6. MULTIHANCE [Suspect]
     Dosage: UNK
  7. PROHANCE [Suspect]
     Dosage: UNK

REACTIONS (19)
  - INTESTINAL POLYP [None]
  - OESOPHAGITIS ULCERATIVE [None]
  - RESPIRATORY FAILURE [None]
  - CHRONIC OBSTRUCTIVE PULMONARY DISEASE [None]
  - EYELID PTOSIS [None]
  - BLEPHAROCHALASIS [None]
  - DERMAL CYST [None]
  - RENAL FAILURE [None]
  - INTESTINAL OBSTRUCTION [None]
  - PULMONARY FIBROSIS [None]
  - BACTERAEMIA [None]
  - POLYCYTHAEMIA [None]
  - PYREXIA [None]
  - BLADDER SPASM [None]
  - OFF LABEL USE [None]
  - NEPHROGENIC SYSTEMIC FIBROSIS [None]
  - GASTROINTESTINAL HAEMORRHAGE [None]
  - HYPOPHOSPHATAEMIA [None]
  - BASAL CELL CARCINOMA [None]
